FAERS Safety Report 19233652 (Version 1)
Quarter: 2021Q2

REPORT INFORMATION
  Report Type: Spontaneous
  Country: GB (occurrence: GB)
  Receive Date: 20210507
  Receipt Date: 20210507
  Transmission Date: 20210717
  Serious: Yes (Congenital Anomaly)
  Sender: FDA-Public Use
  Company Number: GB-TAKEDA-2021TJP021291

PATIENT

DRUGS (1)
  1. ZOTON [Suspect]
     Active Substance: LANSOPRAZOLE
     Indication: GASTRIC BYPASS
     Dosage: 30 MILLIGRAM, QD
     Route: 064

REACTIONS (2)
  - Foetal cardiac disorder [Unknown]
  - Maternal exposure during pregnancy [Unknown]
